FAERS Safety Report 8308765-3 (Version None)
Quarter: 2012Q2

REPORT INFORMATION
  Report Type: 
  Country: None (occurrence: None)
  Receive Date: 20120424
  Receipt Date: 20120419
  Transmission Date: 20120825
  Serious: Yes (Hospitalization)
  Sender: FDA-Public Use
  Company Number: US-PFIZER INC-2012086270

PATIENT
  Sex: Female

DRUGS (1)
  1. CALAN [Suspect]
     Dosage: UNK
     Route: 048

REACTIONS (4)
  - HEART RATE INCREASED [None]
  - MUSCLE SPASMS [None]
  - DISCOMFORT [None]
  - HEAD TITUBATION [None]
